FAERS Safety Report 7285415-9 (Version None)
Quarter: 2011Q1

REPORT INFORMATION
  Report Type: 
  Country: None (occurrence: None)
  Receive Date: 20110210
  Receipt Date: 20101215
  Transmission Date: 20110831
  Serious: No
  Sender: FDA-Public Use
  Company Number: US-ABBOTT-10P-163-0692242-00

PATIENT
  Sex: Female
  Weight: 77.18 kg

DRUGS (5)
  1. TRUVADA [Suspect]
     Indication: HIV INFECTION
     Dates: start: 20101001
  2. ALLEGRA D 24 HOUR [Concomitant]
     Indication: PRODUCT USED FOR UNKNOWN INDICATION
     Dosage: PRN 1/2 A PILL
  3. RECIST [Suspect]
     Indication: HIV INFECTION
     Dates: start: 20101001
  4. NORVIR [Suspect]
     Indication: HIV INFECTION
     Dates: start: 20101001
  5. BACTRIM [Concomitant]
     Indication: LUNG OPERATION
     Dosage: LONG TERM

REACTIONS (3)
  - FATIGUE [None]
  - DIZZINESS [None]
  - NAUSEA [None]
